FAERS Safety Report 7418924-X (Version None)
Quarter: 2011Q2

REPORT INFORMATION
  Report Type: 
  Country: None (occurrence: None)
  Receive Date: 20110415
  Receipt Date: 20110408
  Transmission Date: 20111010
  Serious: Yes (Hospitalization)
  Sender: FDA-Public Use
  Company Number: US-US-EMD SERONO, INC.-7050752

PATIENT
  Sex: Male

DRUGS (1)
  1. REBIF [Suspect]
     Indication: PRODUCT USED FOR UNKNOWN INDICATION
     Route: 058
     Dates: start: 20100410

REACTIONS (5)
  - FATIGUE [None]
  - CHOKING [None]
  - BLOOD PRESSURE ABNORMAL [None]
  - PNEUMONIA [None]
  - PULMONARY OEDEMA [None]
